FAERS Safety Report 5849987-0 (Version None)
Quarter: 2008Q3

REPORT INFORMATION
  Report Type: 
  Country: None (occurrence: None)
  Receive Date: 20080815
  Receipt Date: 20080804
  Transmission Date: 20090109
  Serious: Yes (Death, Hospitalization)
  Sender: FDA-Public Use
  Company Number: 2008US000477

PATIENT
  Age: 60 Year
  Sex: Male

DRUGS (22)
  1. PROGRAF [Suspect]
     Indication: HEART TRANSPLANT
     Dosage: 2 MG, UID/QD, ORAL
     Route: 048
     Dates: end: 20080205
  2. PROGRAF [Suspect]
     Indication: HEART TRANSPLANT
     Dosage: 2 MG, UID/QD, ORAL
     Route: 048
     Dates: end: 20080205
  3. PROGRAF [Suspect]
     Indication: HEART TRANSPLANT
     Dosage: 2 MG, UID/QD, ORAL
     Route: 048
     Dates: start: 20080205
  4. CELEXA [Concomitant]
  5. FLOMAX [Concomitant]
  6. SULFAMETHOXAZOLE AND TRIMETHOPRIM [Concomitant]
  7. DEMADEX [Concomitant]
  8. INSULIN (INSULIN) [Concomitant]
  9. LANTUS [Concomitant]
  10. ACYCLOVIR [Concomitant]
  11. DIGOXIN [Concomitant]
  12. SENNA (SENNOSIDE A+B) [Concomitant]
  13. COLACE (DOCSATE SODIUM) [Concomitant]
  14. PRAVACHOL [Concomitant]
  15. PREDNISONE [Concomitant]
  16. MYCELEC TROCHE (CLOTRIMAZOLE) [Concomitant]
  17. NEURONTIN (PREDNISONE) [Concomitant]
  18. CYCLOPHOSPHAMIDE [Concomitant]
  19. OS-CAL 300 + D (ERGOCALCIFEROL) [Concomitant]
  20. PRILOSEC [Concomitant]
  21. AMBIEN [Concomitant]
  22. ZOLOFT [Concomitant]

REACTIONS (12)
  - BLOOD POTASSIUM INCREASED [None]
  - CARDIAC FAILURE [None]
  - CARDIOGENIC SHOCK [None]
  - CARDIOMYOPATHY [None]
  - DRUG LEVEL DECREASED [None]
  - ELECTROMECHANICAL DISSOCIATION [None]
  - HEART TRANSPLANT REJECTION [None]
  - HYPOTENSION [None]
  - RENAL FAILURE ACUTE [None]
  - URINARY TRACT INFECTION [None]
  - VENTRICULAR FIBRILLATION [None]
  - VENTRICULAR TACHYCARDIA [None]
